FAERS Safety Report 8659678 (Version 3)
Quarter: 2012Q4

REPORT INFORMATION
  Report Type: 
  Country: JP (occurrence: JP)
  Receive Date: 20120711
  Receipt Date: 20121003
  Transmission Date: 20130627
  Serious: Yes (Hospitalization, Other)
  Sender: FDA-Public Use
  Company Number: JP-PFIZER INC-2012161980

PATIENT
  Age: 72 Year
  Sex: Male

DRUGS (5)
  1. NORVASC [Suspect]
     Indication: HYPERTENSION
     Dosage: 5 mg, 1x/day
     Route: 048
  2. ACECOL [Concomitant]
     Indication: HYPERTENSION
     Dosage: 2 mg, 1x/day
     Route: 048
     Dates: end: 20120314
  3. BLOPRESS [Concomitant]
     Indication: HYPERTENSION
     Dosage: 4 mg, 1x/day
     Route: 048
     Dates: start: 20120315
  4. GASMOTIN [Concomitant]
     Dosage: UNK
     Route: 048
  5. GASCON [Concomitant]
     Indication: FLATULENCE
     Dosage: UNK
     Route: 048

REACTIONS (2)
  - Lymphoma [Recovering/Resolving]
  - Enteritis infectious [Recovered/Resolved]
